FAERS Safety Report 7304572-9 (Version None)
Quarter: 2011Q1

REPORT INFORMATION
  Report Type: 
  Country: None (occurrence: None)
  Receive Date: 20110222
  Receipt Date: 20101215
  Transmission Date: 20110831
  Serious: Yes (Hospitalization)
  Sender: FDA-Public Use
  Company Number: PHHY2010JP89577

PATIENT
  Age: 79 Year
  Sex: Male

DRUGS (5)
  1. ALPHA GLUCOSIDASE INHIBITORS [Concomitant]
     Dosage: UNK
  2. STARSIS [Suspect]
     Dosage: 30 MG, DAILY
     Route: 048
     Dates: start: 20090904, end: 20100331
  3. ANTIHYPERTENSIVE DRUGS [Concomitant]
     Dosage: UNK
  4. DRUG FOR HYPERLIPIDEMIA [Concomitant]
     Dosage: UNK
  5. METFORMIN HYDROCHLORIDE [Concomitant]
     Dosage: 500 MG, DAILY

REACTIONS (2)
  - CARDIAC FAILURE CHRONIC [None]
  - ATRIOVENTRICULAR BLOCK COMPLETE [None]
